FAERS Safety Report 19166162 (Version 4)
Quarter: 2022Q1

REPORT INFORMATION
  Report Type: Spontaneous
  Country: CO (occurrence: CO)
  Receive Date: 20210422
  Receipt Date: 20220124
  Transmission Date: 20220423
  Serious: Yes (Other)
  Sender: FDA-Public Use
  Company Number: CO-PFIZER INC-2021415322

PATIENT
  Age: 62 Year
  Sex: Male

DRUGS (2)
  1. ENBREL [Suspect]
     Active Substance: ETANERCEPT
     Indication: Rheumatoid arthritis
     Dosage: 50 MG
     Route: 058
     Dates: start: 2016
  2. ENBREL [Suspect]
     Active Substance: ETANERCEPT
     Dosage: 50 MG
     Route: 058
     Dates: start: 2018, end: 202012

REACTIONS (5)
  - Prostate cancer [Not Recovered/Not Resolved]
  - Metastases to liver [Not Recovered/Not Resolved]
  - General physical health deterioration [Unknown]
  - Inflammation [Unknown]
  - Liver disorder [Unknown]

NARRATIVE: CASE EVENT DATE: 20201201
